FAERS Safety Report 7418171-1 (Version None)
Quarter: 2011Q2

REPORT INFORMATION
  Report Type: 
  Country: None (occurrence: None)
  Receive Date: 20110415
  Receipt Date: 20110405
  Transmission Date: 20111010
  Serious: Yes (Death, Hospitalization)
  Sender: FDA-Public Use
  Company Number: US-JNJFOC-20110309417

PATIENT
  Sex: Male

DRUGS (7)
  1. XANAX [Concomitant]
  2. TRAZODONE [Concomitant]
  3. ETANERCEPT [Concomitant]
  4. CAMPRAL [Concomitant]
  5. STELARA [Suspect]
     Indication: PSORIASIS
     Route: 058
  6. LISINOPRIL [Concomitant]
  7. LEXAPRO [Concomitant]

REACTIONS (2)
  - GASTROINTESTINAL HAEMORRHAGE [None]
  - DRUG INEFFECTIVE [None]
